FAERS Safety Report 9540848 (Version 1)
Quarter: 2013Q3

REPORT INFORMATION
  Report Type: Spontaneous
  Country: US (occurrence: US)
  Receive Date: 20130920
  Receipt Date: 20130920
  Transmission Date: 20140515
  Serious: No
  Sender: FDA-Public Use
  Company Number: US-BAYER-2013-114460

PATIENT
  Age: 73 Year
  Sex: Female
  Weight: 61.22 kg

DRUGS (5)
  1. ALEVE CAPLET [Suspect]
     Indication: ARTHRITIS
     Dosage: 2 DF, PRN
     Route: 048
     Dates: start: 20130918, end: 20130918
  2. BENGAY [Concomitant]
  3. ATENOLOL [Concomitant]
     Dosage: UNK
  4. B-COMPLEX [Concomitant]
     Dosage: UNK
  5. CALCIUM [Concomitant]
     Dosage: UNK

REACTIONS (3)
  - Hyperhidrosis [Recovered/Resolved]
  - Anxiety [Not Recovered/Not Resolved]
  - Nervousness [Not Recovered/Not Resolved]
